FAERS Safety Report 10420889 (Version 1)
Quarter: 2014Q3

REPORT INFORMATION
  Report Type: Spontaneous
  Country: US (occurrence: None)
  Receive Date: 20140829
  Receipt Date: 20140829
  Transmission Date: 20150326
  Serious: Yes (Hospitalization)
  Sender: FDA-Public Use
  Company Number: None

PATIENT
  Age: 40 Year
  Sex: Female
  Weight: 65.7 kg

DRUGS (3)
  1. TAXOL [Suspect]
     Active Substance: PACLITAXEL
  2. METFORMIN HYDROCHLORIDE. [Suspect]
     Active Substance: METFORMIN HYDROCHLORIDE
  3. CARBOPLATIN. [Suspect]
     Active Substance: CARBOPLATIN

REACTIONS (11)
  - Asthenia [None]
  - Memory impairment [None]
  - Lymphocyte count decreased [None]
  - Paraesthesia oral [None]
  - Hypercalcaemia [None]
  - Goitre [None]
  - Blood sodium decreased [None]
  - Blood magnesium decreased [None]
  - Benign neoplasm of thyroid gland [None]
  - Hypoaesthesia oral [None]
  - Hypocalcaemia [None]

NARRATIVE: CASE EVENT DATE: 20140819
